FAERS Safety Report 24457510 (Version 1)
Quarter: 2024Q4

REPORT INFORMATION
  Report Type: Report from Study
  Country: US (occurrence: US)
  Receive Date: 20241018
  Receipt Date: 20241018
  Transmission Date: 20250115
  Serious: No
  Sender: ROCHE
  Company Number: US-ROCHE-3440569

PATIENT
  Age: 46 Year
  Sex: Male

DRUGS (2)
  1. CATHFLO ACTIVASE [Suspect]
     Active Substance: ALTEPLASE
     Indication: Pneumothorax
     Dosage: DATE OF SERVICE: 24/MAY/2023 (20 MG), 25/MAY/2023 (20 MG), 26/MAY/2023 (10 MG)
     Route: 034
     Dates: start: 20230523
  2. CATHFLO ACTIVASE [Suspect]
     Active Substance: ALTEPLASE
     Indication: Pleural effusion

REACTIONS (2)
  - Off label use [Unknown]
  - No adverse event [Unknown]
